FAERS Safety Report 11926842 (Version 9)
Quarter: 2016Q1

REPORT INFORMATION
  Report Type: Report from Study
  Country: FR (occurrence: FR)
  Receive Date: 20160119
  Receipt Date: 20160328
  Transmission Date: 20160526
  Serious: Yes (Death, Life-Threatening, Hospitalization, Other)
  Sender: FDA-Public Use
  Company Number: PHHY2016FR005034

PATIENT
  Age: 67 Year
  Sex: Female

DRUGS (4)
  1. AFINITOR [Suspect]
     Active Substance: EVEROLIMUS
     Indication: BREAST CANCER
     Dosage: 10 MG, QD
     Route: 065
     Dates: start: 20151130
  2. AFINITOR [Suspect]
     Active Substance: EVEROLIMUS
     Indication: METASTASES TO BONE
  3. HEPARIN [Concomitant]
     Active Substance: HEPARIN SODIUM
     Indication: PRODUCT USED FOR UNKNOWN INDICATION
     Route: 065
  4. INNOHEP [Suspect]
     Active Substance: TINZAPARIN SODIUM
     Indication: PULMONARY EMBOLISM
     Dosage: 10000 IU, 0.5 ML DAILY
     Route: 065
     Dates: start: 20151120, end: 20151203

REACTIONS (49)
  - Asthenia [Fatal]
  - Oedema peripheral [Recovered/Resolved with Sequelae]
  - Cardiopulmonary failure [Unknown]
  - Blood potassium decreased [Unknown]
  - Tricuspid valve incompetence [Unknown]
  - Lung disorder [Recovering/Resolving]
  - Sinus rhythm [Unknown]
  - Malaise [Unknown]
  - Protein total decreased [Unknown]
  - Cardiac failure [Recovered/Resolved with Sequelae]
  - Dyspnoea [Recovered/Resolved with Sequelae]
  - Crepitations [Recovered/Resolved with Sequelae]
  - Blood bicarbonate increased [Unknown]
  - Haemoglobin decreased [Unknown]
  - Lymphocyte count decreased [Unknown]
  - Cardiac failure [Fatal]
  - Orthopnoea [Unknown]
  - Dilatation ventricular [Unknown]
  - Oedema peripheral [Unknown]
  - Blood sodium decreased [Unknown]
  - Mitral valve incompetence [Unknown]
  - Blood pressure systolic decreased [Unknown]
  - Dressler^s syndrome [Recovered/Resolved with Sequelae]
  - Arterial occlusive disease [Unknown]
  - Myocardial infarction [Unknown]
  - Hypercalcaemia [Unknown]
  - Haematocrit decreased [Unknown]
  - Dyspnoea [Fatal]
  - Tachycardia [Unknown]
  - Heparin-induced thrombocytopenia [Unknown]
  - Crepitations [Unknown]
  - Palpitations [Unknown]
  - Decreased appetite [Unknown]
  - Fatigue [Unknown]
  - Red blood cell count decreased [Unknown]
  - General physical health deterioration [Recovered/Resolved with Sequelae]
  - Myocardial necrosis [Unknown]
  - Pyrexia [Recovering/Resolving]
  - Wheezing [Unknown]
  - Blood chloride decreased [Unknown]
  - Gamma-glutamyltransferase increased [Unknown]
  - Blood albumin decreased [Unknown]
  - General physical health deterioration [Fatal]
  - Pulmonary oedema [Unknown]
  - Pleural effusion [Recovering/Resolving]
  - Dressler^s syndrome [Unknown]
  - Neutrophil count increased [Unknown]
  - Hypotension [Unknown]
  - Blood urea increased [Unknown]

NARRATIVE: CASE EVENT DATE: 20151203
